FAERS Safety Report 5227131-0 (Version None)
Quarter: 2007Q1

REPORT INFORMATION
  Report Type: 
  Country: None (occurrence: None)
  Receive Date: 20070130
  Receipt Date: 20070116
  Transmission Date: 20070707
  Serious: Yes (Life-Threatening, Other)
  Sender: FDA-Public Use
  Company Number: 2007P1000050

PATIENT
  Age: 64 Year
  Sex: Male

DRUGS (4)
  1. BUSULFAN (BUSULFAN) [Suspect]
     Indication: ILL-DEFINED DISORDER
     Dosage: IV
     Route: 042
     Dates: start: 20060527, end: 20060528
  2. FLUDARABINE PHOSPHATE [Suspect]
     Indication: ILL-DEFINED DISORDER
     Dosage: IV
     Route: 042
     Dates: start: 20060524, end: 20060528
  3. THYMOGLOBULIN [Concomitant]
  4. ONDANSETRON [Concomitant]

REACTIONS (1)
  - HEPATITIS FULMINANT [None]
